FAERS Safety Report 6186431-0 (Version None)
Quarter: 2009Q2

REPORT INFORMATION
  Report Type: 
  Country: None (occurrence: None)
  Receive Date: 20090511
  Receipt Date: 20090427
  Transmission Date: 20091009
  Serious: Yes (Hospitalization)
  Sender: FDA-Public Use
  Company Number: DE-AMGEN-US344897

PATIENT
  Sex: Male
  Weight: 100 kg

DRUGS (16)
  1. ENBREL [Suspect]
     Indication: RHEUMATOID ARTHRITIS
     Route: 058
     Dates: start: 20090219, end: 20090401
  2. HUMALOG [Concomitant]
     Route: 065
  3. ACTRAPHANE HM [Concomitant]
     Route: 065
  4. PREDNISOLONE [Concomitant]
     Route: 065
  5. ARCOXIA [Concomitant]
     Route: 065
     Dates: start: 20050601
  6. LORZAAR [Concomitant]
     Route: 065
  7. JURNISTA [Concomitant]
     Route: 065
  8. SPIRONOLACTONE [Concomitant]
     Route: 065
  9. PROTAPHAN [Concomitant]
     Route: 065
  10. SIMVASTATIN [Concomitant]
     Route: 065
  11. ALLOPURINOL [Concomitant]
     Route: 065
  12. PANTOZOL [Concomitant]
     Route: 048
     Dates: start: 20090401
  13. DIURAPID [Concomitant]
     Route: 065
     Dates: start: 20090401
  14. TAMSULOSIN HCL [Concomitant]
     Route: 065
  15. ISONIAZID [Concomitant]
     Indication: ANTIBIOTIC PROPHYLAXIS
     Dosage: UNKNOWN
     Route: 048
     Dates: start: 20090201, end: 20090401
  16. ISONIAZID [Concomitant]
     Route: 048
     Dates: start: 20090401

REACTIONS (5)
  - DEHYDRATION [None]
  - DYSPNOEA [None]
  - GENERAL PHYSICAL HEALTH DETERIORATION [None]
  - HYPERGLYCAEMIA [None]
  - RENAL FAILURE [None]
